FAERS Safety Report 6895285-6 (Version None)
Quarter: 2010Q3

REPORT INFORMATION
  Report Type: 
  Country: None (occurrence: None)
  Receive Date: 20100802
  Receipt Date: 20100727
  Transmission Date: 20110219
  Serious: Yes (Hospitalization, Other)
  Sender: FDA-Public Use
  Company Number: US-MERCK-1007USA03440

PATIENT
  Age: 83 Year
  Sex: Male

DRUGS (23)
  1. SINEMET [Suspect]
     Indication: PARKINSON'S DISEASE
     Route: 048
  2. THALOMID [Suspect]
     Indication: MULTIPLE MYELOMA
     Route: 048
     Dates: start: 20100211
  3. THALOMID [Suspect]
     Route: 048
     Dates: start: 20100301
  4. THALOMID [Suspect]
     Route: 048
     Dates: start: 20100617, end: 20100628
  5. DECADRON [Concomitant]
     Indication: MULTIPLE MYELOMA
     Dosage: EVERY MONDAY
     Route: 048
     Dates: start: 20100201
  6. ASPIRIN [Concomitant]
     Indication: MULTIPLE MYELOMA
     Route: 065
     Dates: start: 20100201
  7. ZOMETA [Concomitant]
     Indication: MULTIPLE MYELOMA
     Route: 042
     Dates: start: 20100301
  8. METFORMIN [Concomitant]
     Indication: DIABETES MELLITUS
     Route: 048
  9. JANUVIA [Concomitant]
     Indication: DIABETES MELLITUS
     Route: 048
  10. LASIX [Concomitant]
     Indication: OEDEMA PERIPHERAL
     Route: 048
  11. LASIX [Concomitant]
     Route: 048
  12. FERGON [Concomitant]
     Indication: IRON DEFICIENCY
     Route: 065
     Dates: start: 20100201
  13. FERGON [Concomitant]
     Indication: ANAEMIA
     Route: 065
     Dates: start: 20100201
  14. ALDACTONE [Concomitant]
     Indication: OEDEMA PERIPHERAL
     Route: 048
  15. PROSCAR [Concomitant]
     Indication: BENIGN PROSTATIC HYPERPLASIA
     Route: 048
     Dates: start: 20090101
  16. FLOMAX [Concomitant]
     Indication: BENIGN PROSTATIC HYPERPLASIA
     Route: 048
     Dates: start: 20100501
  17. BLACKMORES FOLATE [Concomitant]
     Indication: BENIGN PROSTATIC HYPERPLASIA
     Route: 048
  18. BLACKMORES FOLATE [Concomitant]
     Indication: ANAEMIA
     Route: 048
  19. FLUIDEN [Concomitant]
     Indication: HYPOTENSION
     Route: 042
     Dates: start: 20100601
  20. PRANDIN [Concomitant]
     Indication: DIABETES MELLITUS
     Route: 065
  21. CYANOCOBALAMIN [Concomitant]
     Indication: ANAEMIA
     Route: 065
  22. MIRALAX [Concomitant]
     Route: 065
  23. HYDROCORTISONE [Concomitant]
     Route: 065

REACTIONS (4)
  - CONSTIPATION [None]
  - HYPOTENSION [None]
  - METABOLIC ENCEPHALOPATHY [None]
  - POLLAKIURIA [None]
